FAERS Safety Report 8407119-9 (Version None)
Quarter: 2012Q2

REPORT INFORMATION
  Report Type: 
  Country: None (occurrence: None)
  Receive Date: 20120604
  Receipt Date: 20120530
  Transmission Date: 20120825
  Serious: Yes (Hospitalization)
  Sender: FDA-Public Use
  Company Number: FR-ROCHE-1073830

PATIENT
  Sex: Female

DRUGS (2)
  1. PACLITAXEL [Suspect]
     Indication: BREAST CANCER
     Route: 042
     Dates: start: 20120224, end: 20120224
  2. AVASTIN [Suspect]
     Indication: BREAST CANCER
     Dates: start: 20120224, end: 20120224

REACTIONS (3)
  - PYREXIA [None]
  - NEUTROPENIA [None]
  - RADIATION MUCOSITIS [None]
